FAERS Safety Report 14259708 (Version 3)
Quarter: 2018Q1

REPORT INFORMATION
  Report Type: Report from Study
  Country: US (occurrence: US)
  Receive Date: 20171207
  Receipt Date: 20180201
  Transmission Date: 20180508
  Serious: No
  Sender: FDA-Public Use
  Company Number: US-009507513-1712USA002403

PATIENT
  Sex: Female

DRUGS (1)
  1. IMPLANON [Suspect]
     Active Substance: ETONOGESTREL
     Dosage: 68 MG (1 ROD), EVERY 3 YEARS
     Route: 059
     Dates: start: 20171201, end: 20171201

REACTIONS (4)
  - Complication of device insertion [Unknown]
  - Product container issue [Unknown]
  - No adverse event [Unknown]
  - Device difficult to use [Unknown]

NARRATIVE: CASE EVENT DATE: 20171201
